FAERS Safety Report 8658808 (Version 2)
Quarter: 2013Q1

REPORT INFORMATION
  Report Type: Spontaneous
  Country: US (occurrence: US)
  Receive Date: 20120710
  Receipt Date: 20130318
  Transmission Date: 20140127
  Serious: Yes (Other)
  Sender: FDA-Public Use
  Company Number: US-CELGENEUS-163-50794-12070734

PATIENT
  Age: 54 Year
  Sex: Male
  Weight: 87.8 kg

DRUGS (1)
  1. VIDAZA [Suspect]
     Indication: MYELODYSPLASTIC SYNDROME
     Dosage: 75 MILLIGRAM
     Route: 058
     Dates: start: 20120531

REACTIONS (2)
  - Pericardial effusion [Recovered/Resolved]
  - Pyrexia [Not Recovered/Not Resolved]
